FAERS Safety Report 9285198 (Version 1)
Quarter: 2013Q2

REPORT INFORMATION
  Report Type: Spontaneous
  Country: US (occurrence: US)
  Receive Date: 20130513
  Receipt Date: 20130513
  Transmission Date: 20140414
  Serious: Yes (Other)
  Sender: FDA-Public Use
  Company Number: US-BAYER-2013-056091

PATIENT
  Sex: Male

DRUGS (6)
  1. BETASERON [Suspect]
     Indication: RELAPSING-REMITTING MULTIPLE SCLEROSIS
     Dosage: 0.3 MG, QOD
     Route: 058
     Dates: start: 2010, end: 201211
  2. LIPITOR [Concomitant]
  3. TOPROL [Concomitant]
  4. RAMIPRIL [Concomitant]
  5. REGLAN [Concomitant]
  6. ZOFRAN [Concomitant]

REACTIONS (1)
  - Gastrointestinal haemorrhage [Unknown]
